FAERS Safety Report 15603769 (Version 1)
Quarter: 2018Q4

REPORT INFORMATION
  Report Type: Spontaneous
  Country: SG (occurrence: SG)
  Receive Date: 20181109
  Receipt Date: 20181109
  Transmission Date: 20190205
  Serious: Yes (Other)
  Sender: FDA-Public Use
  Company Number: SG-PFIZER INC-2018463787

PATIENT
  Age: 73 Year
  Sex: Male

DRUGS (3)
  1. CARBOPLATIN. [Concomitant]
     Active Substance: CARBOPLATIN
     Indication: BRONCHIOLOALVEOLAR CARCINOMA
     Dosage: UNK, CYCLIC
  2. VINORELBINE TARTRATE. [Suspect]
     Active Substance: VINORELBINE TARTRATE
     Indication: BRONCHIOLOALVEOLAR CARCINOMA
     Dosage: UNK UNK, CYCLIC
  3. LOPERAMIDE [Suspect]
     Active Substance: LOPERAMIDE

REACTIONS (3)
  - Abdominal distension [Unknown]
  - Neurotoxicity [Unknown]
  - Clostridium difficile infection [Unknown]
